FAERS Safety Report 8437001-2 (Version None)
Quarter: 2012Q2

REPORT INFORMATION
  Report Type: 
  Country: None (occurrence: None)
  Receive Date: 20120614
  Receipt Date: 20120102
  Transmission Date: 20120825
  Serious: No
  Sender: FDA-Public Use
  Company Number: US-AMGEN-USASP2012000043

PATIENT
  Age: 76 Year
  Sex: Female

DRUGS (2)
  1. ARANESP [Suspect]
     Indication: MYELOFIBROSIS
     Dosage: UNK
     Dates: start: 20111227
  2. RED BLOOD CELLS [Concomitant]
     Dosage: UNK

REACTIONS (3)
  - PRURITUS [None]
  - BONE PAIN [None]
  - HEADACHE [None]
